FAERS Safety Report 25741605 (Version 1)
Quarter: 2025Q3

REPORT INFORMATION
  Report Type: Spontaneous
  Country: JP (occurrence: JP)
  Receive Date: 20250829
  Receipt Date: 20250829
  Transmission Date: 20251020
  Serious: Yes (Other)
  Sender: AKEBIA THERAPEUTICS
  Company Number: JP-JT-EVA202503458AKEBIAP

PATIENT
  Age: 37 Year
  Sex: Female

DRUGS (8)
  1. FERRIC CITRATE ANHYDROUS [Suspect]
     Active Substance: FERRIC CITRATE ANHYDROUS
     Indication: Iron deficiency anaemia
     Dosage: 250 MILLIGRAM, Q12H
     Route: 048
  2. HETASTARCH [Suspect]
     Active Substance: HETASTARCH
     Indication: Fluid replacement
     Dosage: 1500 MILLILITER, QD
     Route: 042
  3. DEXTROSE [Suspect]
     Active Substance: DEXTROSE MONOHYDRATE
     Indication: Fluid replacement
     Dosage: 1000 MILLILITER, QD
     Route: 042
  4. CALCIUM CHLORIDE\POTASSIUM CHLORIDE\SODIUM ACETATE [Suspect]
     Active Substance: CALCIUM CHLORIDE\POTASSIUM CHLORIDE\SODIUM ACETATE
     Indication: Fluid replacement
     Dosage: 1500 MILLILITER, QD
     Route: 042
  5. OXYTOCIN [Concomitant]
     Active Substance: OXYTOCIN
     Indication: Labour induction
     Route: 042
  6. ROPIVACAINE HYDROCHLORIDE [Concomitant]
     Active Substance: ROPIVACAINE HYDROCHLORIDE
     Indication: Epidural anaesthesia
     Dosage: 200 MILLIGRAM, QD
     Route: 008
  7. FENTANYL CITRATE [Concomitant]
     Active Substance: FENTANYL CITRATE
     Indication: Epidural anaesthesia
     Dosage: 0.4 MILLIGRAM, QD
     Route: 008
  8. UNSPECIFIED INGREDIENT [Concomitant]
     Active Substance: UNSPECIFIED INGREDIENT
     Indication: Epidural anaesthesia
     Dosage: 5 MILLILITER, QD
     Route: 008

REACTIONS (5)
  - Seizure [Recovered/Resolved]
  - Shock haemorrhagic [Recovered/Resolved]
  - Procedural pain [Unknown]
  - Hyponatraemia [Unknown]
  - Exposure during pregnancy [Unknown]
